FAERS Safety Report 4706136-X (Version None)
Quarter: 2005Q2

REPORT INFORMATION
  Report Type: 
  Country: None (occurrence: None)
  Receive Date: 20050627
  Receipt Date: 20050606
  Transmission Date: 20051028
  Serious: Yes (Other)
  Sender: FDA-Public Use
  Company Number: PHEH2005US05082

PATIENT
  Age: 28 Year
  Sex: Female

DRUGS (12)
  1. MYFORTIC [Suspect]
     Indication: RENAL TRANSPLANT
     Dosage: BID, ORAL
     Route: 048
     Dates: start: 20050423
  2. PREDNISONE [Concomitant]
  3. PROGRAF [Concomitant]
  4. CALCITROL (CALCIUM CARBONATE, ERGOCALCIFEROL, RETINOL) [Concomitant]
  5. BACTRIM [Concomitant]
  6. LIPITOR /UNK/ (ATORVASTATIN) [Concomitant]
  7. ORTHO TRI-CYCLEN [Concomitant]
  8. MAGNESIUM OXIDE (MAGNESIUM OXIDE) [Concomitant]
  9. CALCIUM CITRATE (CALCIUM CITRATE) [Concomitant]
  10. EPOGEN [Concomitant]
  11. CHROMAGEN (ASCORBIC ACID, CYANOCOBALAMIN, FERROUS FUMARATE, STOMACH DE [Concomitant]
  12. MULTIVITAMINS (ASCORBIC ACID, ERGOCALCIFEROL, FOLIC ACID, NICOTINAMIDE [Concomitant]

REACTIONS (6)
  - BURNING SENSATION [None]
  - DEHYDRATION [None]
  - DRUG LEVEL INCREASED [None]
  - MIGRAINE [None]
  - PARAESTHESIA [None]
  - TREMOR [None]
